FAERS Safety Report 24440870 (Version 2)
Quarter: 2024Q4

REPORT INFORMATION
  Report Type: Report from Study
  Country: GB (occurrence: GB)
  Receive Date: 20241016
  Receipt Date: 20241017
  Transmission Date: 20250114
  Serious: No
  Sender: ROCHE
  Company Number: GB-ROCHE-3444569

PATIENT
  Age: 17 Year
  Weight: 73.6 kg

DRUGS (1)
  1. HEMLIBRA [Suspect]
     Active Substance: EMICIZUMAB-KXWH
     Indication: Haemophilia A without inhibitors
     Dosage: 30 MG/ML OR 150 MG/ML
     Route: 065
     Dates: start: 202009, end: 202011

REACTIONS (2)
  - Drug ineffective [Unknown]
  - Haemorrhage [Recovered/Resolved]

NARRATIVE: CASE EVENT DATE: 20201101
